FAERS Safety Report 23884044 (Version 1)
Quarter: 2024Q2

REPORT INFORMATION
  Report Type: Spontaneous
  Country: US (occurrence: US)
  Receive Date: 20240522
  Receipt Date: 20240522
  Transmission Date: 20240716
  Serious: No
  Sender: FDA-Public Use
  Company Number: US-APOTEX-2023AP015484

PATIENT
  Age: 91 Year
  Sex: Female
  Weight: 69.841 kg

DRUGS (1)
  1. IPRATROPIUM BROMIDE [Suspect]
     Active Substance: IPRATROPIUM BROMIDE\IPRATROPIUM BROMIDE ANHYDROUS
     Indication: Rhinorrhoea
     Dosage: 2 DOSAGE FORM, TID
     Route: 045
     Dates: start: 20231011

REACTIONS (6)
  - Illness [Unknown]
  - Balance disorder [Unknown]
  - Hypersomnia [Unknown]
  - Abdominal discomfort [Unknown]
  - Thirst [Unknown]
  - Vision blurred [Unknown]

NARRATIVE: CASE EVENT DATE: 20231001
